FAERS Safety Report 5755480-6 (Version None)
Quarter: 2008Q2

REPORT INFORMATION
  Report Type: 
  Country: None (occurrence: None)
  Receive Date: 20080602
  Receipt Date: 20080521
  Transmission Date: 20081010
  Serious: Yes (Other)
  Sender: FDA-Public Use
  Company Number: GB-SANOFI-SYNTHELABO-A01200805585

PATIENT
  Sex: Female

DRUGS (1)
  1. XATRAL [Suspect]
     Indication: DRUG USE FOR UNKNOWN INDICATION
     Dosage: UNK
     Route: 048
     Dates: start: 20080327, end: 20080411

REACTIONS (4)
  - DRY MOUTH [None]
  - HYPERTENSION [None]
  - URETHRAL STENOSIS [None]
  - URINARY RETENTION [None]
